FAERS Safety Report 16917376 (Version 1)
Quarter: 2019Q4

REPORT INFORMATION
  Report Type: Spontaneous
  Country: CA (occurrence: CA)
  Receive Date: 20191015
  Receipt Date: 20191015
  Transmission Date: 20200122
  Serious: Yes (Other)
  Sender: FDA-Public Use
  Company Number: CA-TEVA-2019-CA-1121085

PATIENT
  Age: 12 Year
  Sex: Female

DRUGS (3)
  1. ETOPOSIDE. [Suspect]
     Active Substance: ETOPOSIDE
     Indication: OVARIAN DYSGERMINOMA STAGE UNSPECIFIED
     Route: 065
  2. CARBOPLATIN. [Suspect]
     Active Substance: CARBOPLATIN
     Indication: OVARIAN DYSGERMINOMA STAGE UNSPECIFIED
     Route: 065
  3. BLEOMYCIN [Suspect]
     Active Substance: BLEOMYCIN SULFATE
     Indication: OVARIAN DYSGERMINOMA STAGE UNSPECIFIED
     Route: 065

REACTIONS (5)
  - Product use in unapproved indication [Unknown]
  - Herpes zoster [Unknown]
  - Nephrocalcinosis [Unknown]
  - Renal failure [Unknown]
  - Renal tubular necrosis [Unknown]
